FAERS Safety Report 4631654-2 (Version None)
Quarter: 2005Q2

REPORT INFORMATION
  Report Type: 
  Country: None (occurrence: None)
  Receive Date: 20050407
  Receipt Date: 20050328
  Transmission Date: 20051028
  Serious: Yes (Other)
  Sender: FDA-Public Use
  Company Number: L05-BRA-01071-01

PATIENT
  Age: 34 Year
  Sex: Female

DRUGS (5)
  1. PROPRANOLOL [Suspect]
     Indication: SOCIAL PHOBIA
     Dosage: 80 MG PRN PO
     Route: 048
  2. PROPRANOLOL [Suspect]
     Indication: SOCIAL PHOBIA
     Dosage: 320 MG PRN PO
     Route: 048
  3. PROPRANOLOL [Suspect]
     Indication: SOCIAL PHOBIA
     Dosage: 20 MG PRN PO
     Route: 048
  4. TRANYCYPROMIDE [Concomitant]
  5. PAROXETINE HCL [Concomitant]

REACTIONS (5)
  - DRUG ABUSER [None]
  - DRUG INEFFECTIVE [None]
  - MEDICATION ERROR [None]
  - ORTHOSTATIC HYPOTENSION [None]
  - SELF-MEDICATION [None]
